FAERS Safety Report 23429971 (Version 1)
Quarter: 2024Q1

REPORT INFORMATION
  Report Type: Spontaneous
  Country: DK (occurrence: DK)
  Receive Date: 20240122
  Receipt Date: 20240122
  Transmission Date: 20240410
  Serious: Yes (Life-Threatening, Hospitalization)
  Sender: FDA-Public Use
  Company Number: None

PATIENT
  Age: 56 Year
  Sex: Male

DRUGS (1)
  1. CANAGLIFLOZIN [Suspect]
     Active Substance: CANAGLIFLOZIN
     Indication: Diabetes mellitus
     Dosage: STRENGTH: 300 MG
     Route: 048
     Dates: start: 20190429, end: 20231229

REACTIONS (5)
  - Scrotal pain [Unknown]
  - Scrotal disorder [Unknown]
  - Scrotal swelling [Unknown]
  - Fournier^s gangrene [Recovering/Resolving]
  - Scrotal erythema [Unknown]

NARRATIVE: CASE EVENT DATE: 20231201
